FAERS Safety Report 7771035-6 (Version None)
Quarter: 2011Q3

REPORT INFORMATION
  Report Type: 
  Country: None (occurrence: None)
  Receive Date: 20110922
  Receipt Date: 20110203
  Transmission Date: 20111222
  Serious: No
  Sender: FDA-Public Use
  Company Number: US-ASTRAZENECA-2011SE06020

PATIENT
  Age: 33 Year
  Sex: Female

DRUGS (10)
  1. SEROQUEL [Suspect]
     Indication: BIPOLAR DISORDER
     Route: 048
     Dates: start: 20070101, end: 20100901
  2. GRANADINE [Concomitant]
  3. LORTAB [Concomitant]
  4. SEROQUEL [Suspect]
     Route: 048
     Dates: start: 20101101
  5. METFORMIN [Concomitant]
  6. NAPROXIN [Concomitant]
  7. BUSPAR [Concomitant]
  8. SEROQUEL [Suspect]
     Route: 048
     Dates: start: 20100901, end: 20101101
  9. ROBAXIN [Concomitant]
  10. CYMBALTA [Concomitant]

REACTIONS (7)
  - INSOMNIA [None]
  - DRUG INEFFECTIVE [None]
  - NO ADVERSE EVENT [None]
  - DRUG DOSE OMISSION [None]
  - THERAPEUTIC RESPONSE UNEXPECTED [None]
  - FALL [None]
  - CARTILAGE INJURY [None]
